FAERS Safety Report 19316501 (Version 1)
Quarter: 2021Q2

REPORT INFORMATION
  Report Type: Other
  Country: GB (occurrence: GB)
  Receive Date: 20210528
  Receipt Date: 20210528
  Transmission Date: 20210717
  Serious: No
  Sender: FDA-Public Use
  Company Number: GB-LUPIN PHARMACEUTICALS INC.-2021-07498

PATIENT
  Age: 72 Year
  Sex: Female
  Weight: 79 kg

DRUGS (3)
  1. SIMVASTATIN TABLETS [Suspect]
     Active Substance: SIMVASTATIN
     Indication: TYPE IIA HYPERLIPIDAEMIA
     Dosage: 1 DOSAGE FORM, WITH EVENING MEAL (TWICE A WEEK)
     Route: 065
     Dates: start: 20210330, end: 20210511
  2. ASTRAZENECA COVID?19 VACCINE [Concomitant]
     Active Substance: AZD-1222
     Dosage: UNK, 1 DOSE
     Route: 030
     Dates: start: 20210430
  3. ASTRAZENECA COVID?19 VACCINE [Concomitant]
     Active Substance: AZD-1222
     Indication: IMMUNISATION
     Dosage: UNK, 1 DOSE
     Route: 030
     Dates: start: 20210211

REACTIONS (2)
  - Myalgia [Recovered/Resolved]
  - Drug intolerance [Not Recovered/Not Resolved]

NARRATIVE: CASE EVENT DATE: 20210330
